FAERS Safety Report 6847895-X (Version None)
Quarter: 2010Q3

REPORT INFORMATION
  Report Type: 
  Country: None (occurrence: None)
  Receive Date: 20100716
  Receipt Date: 20100624
  Transmission Date: 20110219
  Serious: No
  Sender: FDA-Public Use
  Company Number: US-ROXANE LABORATORIES, INC.-2010-RO-00758RO

PATIENT
  Sex: Female

DRUGS (1)
  1. METHADONE HCL [Suspect]
     Indication: PAIN

REACTIONS (4)
  - DRUG INEFFECTIVE [None]
  - FOREIGN BODY [None]
  - PRODUCT SOLUBILITY ABNORMAL [None]
  - WITHDRAWAL SYNDROME [None]
